FAERS Safety Report 13249498 (Version 1)
Quarter: 2017Q1

REPORT INFORMATION
  Report Type: Spontaneous
  Country: US (occurrence: US)
  Receive Date: 20170218
  Receipt Date: 20170218
  Transmission Date: 20170428
  Serious: No
  Sender: FDA-Public Use
  Company Number: US-ALLERGAN-1668246US

PATIENT
  Age: 66 Year
  Sex: Female
  Weight: 54.42 kg

DRUGS (4)
  1. RESTASIS [Suspect]
     Active Substance: CYCLOSPORINE
     Indication: DRY EYE
     Dosage: 2 GTT, BID
     Route: 047
     Dates: start: 20160817, end: 20160826
  2. TOBRAMYCIN. [Concomitant]
     Active Substance: TOBRAMYCIN
     Indication: OCULAR HYPERAEMIA
     Dosage: UNK
     Route: 047
     Dates: start: 2016, end: 2016
  3. TOBRAMYCIN. [Concomitant]
     Active Substance: TOBRAMYCIN
     Indication: EYE INFLAMMATION
  4. ARTIFICIAL TEARS [Concomitant]
     Active Substance: GLYCERIN\HYPROMELLOSES\POLYETHYLENE GLYCOL 400
     Indication: DRY EYE
     Dosage: 3-4 TIMES DAY
     Route: 047

REACTIONS (5)
  - Exophthalmos [Recovered/Resolved]
  - Eye irritation [Recovered/Resolved]
  - Cataract [Not Recovered/Not Resolved]
  - Visual acuity reduced [Recovered/Resolved]
  - Eye pain [Recovered/Resolved]

NARRATIVE: CASE EVENT DATE: 20160817
